FAERS Safety Report 21343861 (Version 1)
Quarter: 2022Q3

REPORT INFORMATION
  Report Type: Spontaneous
  Country: GB (occurrence: GB)
  Receive Date: 20220916
  Receipt Date: 20220916
  Transmission Date: 20221027
  Serious: Yes (Hospitalization, Other)
  Sender: FDA-Public Use
  Company Number: GB-VERTEX PHARMACEUTICALS-2022-013557

PATIENT
  Sex: Male

DRUGS (4)
  1. ELEXACAFTOR\IVACAFTOR\TEZACAFTOR [Suspect]
     Active Substance: ELEXACAFTOR\IVACAFTOR\TEZACAFTOR
     Indication: Cystic fibrosis
     Dosage: (75 MG IVA/ 50 MG TEZA/ 100 MG ELEXA) DAILY
     Route: 048
  2. KALYDECO [Suspect]
     Active Substance: IVACAFTOR
     Indication: Cystic fibrosis
     Dosage: UNKNOWN FREQUENCY
     Route: 048
  3. PULMOZYME [Concomitant]
     Active Substance: DORNASE ALFA
     Dosage: 2.5 MG VIAL
  4. TOBI [Concomitant]
     Active Substance: TOBRAMYCIN
     Dosage: 300MG/5ML NEB SOL
     Route: 055

REACTIONS (7)
  - Hospitalisation [Unknown]
  - Portal shunt procedure [Unknown]
  - Lower respiratory tract infection [Unknown]
  - Fluid retention [Not Recovered/Not Resolved]
  - Oedema [Not Recovered/Not Resolved]
  - Haematemesis [Not Recovered/Not Resolved]
  - Thrombosis [Unknown]

NARRATIVE: CASE EVENT DATE: 20220101
